FAERS Safety Report 19083206 (Version 1)
Quarter: 2021Q2

REPORT INFORMATION
  Report Type: Spontaneous
  Country: GB (occurrence: GB)
  Receive Date: 20210401
  Receipt Date: 20210401
  Transmission Date: 20210717
  Serious: Yes (Hospitalization, Other)
  Sender: FDA-Public Use
  Company Number: GB-PFIZER INC-2021322439

PATIENT
  Age: 26 Year
  Sex: Female
  Weight: 83.91 kg

DRUGS (1)
  1. CLINDAMYCIN. [Suspect]
     Active Substance: CLINDAMYCIN
     Indication: HIDRADENITIS
     Dosage: UNK
     Route: 048

REACTIONS (2)
  - Adverse drug reaction [Recovered/Resolved]
  - Blister [Recovered/Resolved]
